FAERS Safety Report 7964827-1 (Version None)
Quarter: 2011Q4

REPORT INFORMATION
  Report Type: 
  Country: None (occurrence: None)
  Receive Date: 20111121
  Receipt Date: 20110831
  Transmission Date: 20120403
  Serious: No
  Sender: FDA-Public Use
  Company Number: 1000023392

PATIENT
  Age: 40 Year
  Sex: Male

DRUGS (6)
  1. TRILEPTAL (OXCARBAZEPINE) (OXCARBAZEPINE) [Concomitant]
  2. VIIBRYD [Suspect]
     Indication: BIPOLAR DISORDER
     Dosage: 10 MG (10 MG, 1 IN 1 D), ORAL, 20 MG (20 MG, 1 IN 1 D), ORAL, 40 MG (40 MG, 1 IN 1 D), ORAL
     Route: 048
     Dates: start: 20110801
  3. VIIBRYD [Suspect]
     Indication: BIPOLAR DISORDER
     Dosage: 10 MG (10 MG, 1 IN 1 D), ORAL, 20 MG (20 MG, 1 IN 1 D), ORAL, 40 MG (40 MG, 1 IN 1 D), ORAL
     Route: 048
     Dates: start: 20110801, end: 20110801
  4. VIIBRYD [Suspect]
     Indication: BIPOLAR DISORDER
     Dosage: 10 MG (10 MG, 1 IN 1 D), ORAL, 20 MG (20 MG, 1 IN 1 D), ORAL, 40 MG (40 MG, 1 IN 1 D), ORAL
     Route: 048
     Dates: start: 20110801, end: 20110801
  5. BLOOD PRESSURE MEDICATION NOS (BLOOD PRESSURE MEDICATION NOS) (BLOOD P [Concomitant]
  6. ACIPHEX (RABEPRAZOLE SODIUM) (RABEPRAZOLE SODIUM) [Concomitant]

REACTIONS (3)
  - INSOMNIA [None]
  - MANIA [None]
  - NAUSEA [None]
